FAERS Safety Report 6428072-3 (Version None)
Quarter: 2009Q4

REPORT INFORMATION
  Report Type: 
  Country: None (occurrence: None)
  Receive Date: 20091105
  Receipt Date: 20091026
  Transmission Date: 20100525
  Serious: Yes (Death, Other)
  Sender: FDA-Public Use
  Company Number: PL-ROCHE-664703

PATIENT
  Age: 40 Year
  Sex: Male

DRUGS (5)
  1. MYCOPHENOLATE MOFETIL [Suspect]
     Indication: GRAFT VERSUS HOST DISEASE
     Route: 065
  2. MYCOPHENOLATE MOFETIL [Suspect]
     Dosage: DOSE DECREASED
     Route: 065
  3. IMATINIB MESYLATE [Suspect]
     Route: 065
  4. METHYLPREDNISOLONE 4MG TAB [Suspect]
     Indication: GRAFT VERSUS HOST DISEASE
     Dosage: DOSE 2 MG/KG BODY WEIGHT
     Route: 065
  5. TACROLIMUS [Suspect]
     Indication: GRAFT VERSUS HOST DISEASE
     Dosage: SERUM LEVEL: 5-10 NG/ML
     Route: 065

REACTIONS (5)
  - CYTOMEGALOVIRUS INFECTION [None]
  - DISEASE PROGRESSION [None]
  - MULTI-ORGAN DISORDER [None]
  - PANCYTOPENIA [None]
  - SYSTEMIC CANDIDA [None]
